FAERS Safety Report 13925324 (Version 1)
Quarter: 2017Q3

REPORT INFORMATION
  Report Type: Spontaneous
  Country: IE (occurrence: IE)
  Receive Date: 20170831
  Receipt Date: 20170831
  Transmission Date: 20171127
  Serious: Yes (Other)
  Sender: FDA-Public Use
  Company Number: IE-009507513-1708IRL011209

PATIENT
  Age: 80 Year
  Sex: Male

DRUGS (2)
  1. PEMBROLIZUMAB. [Suspect]
     Active Substance: PEMBROLIZUMAB
     Indication: DESMOPLASTIC MELANOMA
     Dosage: UNK
     Dates: start: 201606
  2. IPILIMUMAB [Concomitant]
     Active Substance: IPILIMUMAB
     Indication: DESMOPLASTIC MELANOMA
     Dosage: UNK
     Dates: start: 201602

REACTIONS (2)
  - Cerebellar ataxia [Recovering/Resolving]
  - Autoimmune neuropathy [Unknown]

NARRATIVE: CASE EVENT DATE: 201610
